FAERS Safety Report 18547163 (Version 1)
Quarter: 2020Q4

REPORT INFORMATION
  Report Type: Spontaneous
  Country: FR (occurrence: FR)
  Receive Date: 20201125
  Receipt Date: 20201125
  Transmission Date: 20210114
  Serious: Yes (Other)
  Sender: FDA-Public Use
  Company Number: NVSC2020FR308577

PATIENT
  Age: 89 Year
  Sex: Female
  Weight: 56 kg

DRUGS (2)
  1. RIFAMPICINE [Suspect]
     Active Substance: RIFAMPIN
     Indication: INFECTION
     Dosage: 1200 MG,QD
     Route: 048
     Dates: start: 20160523, end: 20160728
  2. LINEZOLID. [Suspect]
     Active Substance: LINEZOLID
     Indication: INFECTION
     Dosage: 1200 MG,QD
     Route: 048
     Dates: start: 20160523, end: 20160728

REACTIONS (4)
  - Ageusia [Recovered/Resolved]
  - Neutropenia [Recovered/Resolved]
  - Vomiting [Recovered/Resolved]
  - Anaemia [Recovered/Resolved]

NARRATIVE: CASE EVENT DATE: 20160621
